FAERS Safety Report 6343362-0 (Version None)
Quarter: 2009Q3

REPORT INFORMATION
  Report Type: 
  Country: None (occurrence: None)
  Receive Date: 20090908
  Receipt Date: 20090828
  Transmission Date: 20100115
  Serious: Yes (Hospitalization)
  Sender: FDA-Public Use
  Company Number: PHHY2009MX27841

PATIENT
  Age: 65 Year
  Sex: Female

DRUGS (1)
  1. ACLASTA [Suspect]
     Indication: PROPHYLAXIS
     Dosage: 5 MG/100 ML, 1 INJECTION/YEAR
     Dates: start: 20090706

REACTIONS (5)
  - DISCOMFORT [None]
  - GAIT DISTURBANCE [None]
  - JOINT ARTHROPLASTY [None]
  - MYALGIA [None]
  - PAIN [None]
